FAERS Safety Report 7817189-4 (Version None)
Quarter: 2011Q4

REPORT INFORMATION
  Report Type: 
  Country: None (occurrence: None)
  Receive Date: 20111017
  Receipt Date: 20111017
  Transmission Date: 20120403
  Serious: Yes (Other)
  Sender: FDA-Public Use
  Company Number: None

PATIENT
  Age: 43 Year
  Sex: Female
  Weight: 97.975 kg

DRUGS (1)
  1. CYMBALTA [Suspect]
     Indication: DEPRESSION
     Dosage: 1

REACTIONS (11)
  - WITHDRAWAL SYNDROME [None]
  - DIARRHOEA [None]
  - ARTHRALGIA [None]
  - NIGHTMARE [None]
  - FAECAL INCONTINENCE [None]
  - MYALGIA [None]
  - INSOMNIA [None]
  - ABDOMINAL PAIN [None]
  - ANXIETY [None]
  - AFFECT LABILITY [None]
  - BRUXISM [None]
